FAERS Safety Report 10440655 (Version 1)
Quarter: 2014Q3

REPORT INFORMATION
  Report Type: Spontaneous
  Country: US (occurrence: US)
  Receive Date: 20140909
  Receipt Date: 20140909
  Transmission Date: 20150326
  Serious: Yes (Other)
  Sender: FDA-Public Use
  Company Number: PHEH2014US017542

PATIENT
  Age: 52 Year
  Sex: Female

DRUGS (32)
  1. NORCO [Concomitant]
     Active Substance: ACETAMINOPHEN\HYDROCODONE BITARTRATE
     Dosage: UNK UKN, UNK
  2. VITAMIN B COMPLEX [Concomitant]
     Active Substance: CYANOCOBALAMIN\DEXPANTHENOL\NIACINAMIDE\PYRIDOXINE HYDROCHLORIDE\RIBOFLAVIN 5^-PHOSPHATE SODIUM\THIAMINE HYDROCHLORIDE\VITAMIN B COMPLEX
     Dosage: UNK UKN, UNK
  3. SILYMARIN [Concomitant]
     Active Substance: MILK THISTLE
     Dosage: UNK UKN, UNK
  4. METOPROLOL [Suspect]
     Active Substance: METOPROLOL
     Dosage: 25 MG, PER DAY
     Dates: start: 201001, end: 2011
  5. VANQUISH [Concomitant]
     Active Substance: ACETAMINOPHEN\ASPIRIN\CAFFEINE
     Dosage: UNK UKN, UNK
  6. UBIDECARENONE [Concomitant]
     Active Substance: UBIDECARENONE
     Dosage: UNK UKN, UNK
  7. CYANOCOBALAMIN. [Concomitant]
     Active Substance: CYANOCOBALAMIN
     Dosage: UNK UKN, UNK
  8. CARNITINE [Concomitant]
     Active Substance: CARNITINE
     Dosage: UNK UKN, UNK
  9. COLECALCIFEROL [Concomitant]
     Active Substance: CHOLECALCIFEROL
     Dosage: UNK UKN, UNK
  10. GINKGO BILOBA [Concomitant]
     Active Substance: GINKGO
     Dosage: UNK UKN, UNK
  11. COCONUT OIL [Concomitant]
     Active Substance: COCONUT OIL
     Dosage: UNK UKN, UNK
  12. THIOCTIC ACID [Concomitant]
     Active Substance: .ALPHA.-LIPOIC ACID, (+/-)-
     Dosage: UNK UKN, UNK
  13. BONE MEAL [Concomitant]
     Dosage: UNK UKN, UNK
  14. RADIOTHERAPY [Suspect]
     Active Substance: RADIATION THERAPY
     Indication: BREAST CANCER
     Dosage: UNK UKN, UNK
  15. ALOE VERA [Concomitant]
     Active Substance: ALOE VERA LEAF
     Dosage: UNK UKN, UNK
  16. TYKERB [Suspect]
     Active Substance: LAPATINIB DITOSYLATE
     Indication: BREAST CANCER
     Dosage: 1250 MG, PER DAY (FIVE TABLETS DAILY)
     Route: 048
     Dates: end: 20130502
  17. TYKERB [Suspect]
     Active Substance: LAPATINIB DITOSYLATE
     Dosage: 4 DF, UNK
     Dates: start: 201403, end: 201404
  18. OMEGA-3 MARINE TRIGLYCERIDES [Concomitant]
     Active Substance: FISH OIL
     Dosage: UNK UKN, UNK
  19. GRAPE SEED EXTRACT ^NATURAL FACTORS^ [Concomitant]
     Dosage: UNK UKN, UNK
  20. TRASTUZUMAB [Suspect]
     Active Substance: TRASTUZUMAB
     Indication: BREAST CANCER
     Dosage: UNK UKN, EVERY 3 WEEKS
     Dates: start: 201001, end: 201004
  21. MELATONIN [Concomitant]
     Active Substance: MELATONIN
     Dosage: UNK UKN, UNK
  22. FISH OIL [Concomitant]
     Active Substance: FISH OIL
     Dosage: UNK UKN, UNK
  23. MAGNESIUM SALT [Concomitant]
     Dosage: UNK UKN, UNK
  24. PACLITAXEL. [Suspect]
     Active Substance: PACLITAXEL
     Indication: BREAST CANCER
     Dosage: UNK UKN, UNK
     Dates: start: 201001
  25. WARFARIN SODIUM. [Concomitant]
     Active Substance: WARFARIN SODIUM
     Dosage: UNK UKN, UNK
  26. ASCORBIC ACID. [Concomitant]
     Active Substance: ASCORBIC ACID
     Dosage: UNK UKN, UNK
  27. ZOMETA [Suspect]
     Active Substance: ZOLEDRONIC ACID
     Dosage: UNK UKN, UNK
  28. TYKERB [Suspect]
     Active Substance: LAPATINIB DITOSYLATE
     Dosage: UNK UKN, UNK
     Dates: start: 20130503
  29. PREGABALIN. [Concomitant]
     Active Substance: PREGABALIN
     Dosage: UNK UKN, UNK
  30. ADDERALL [Concomitant]
     Active Substance: AMPHETAMINE ASPARTATE\AMPHETAMINE SULFATE\DEXTROAMPHETAMINE SACCHARATE\DEXTROAMPHETAMINE SULFATE
     Dosage: UNK UKN, UNK
  31. OLIVE OIL [Concomitant]
     Active Substance: OLIVE OIL
     Dosage: UNK UKN, UNK
  32. DOCOSAHEXAENOIC ACID [Concomitant]
     Dosage: UNK UKN, UNK

REACTIONS (56)
  - Chest discomfort [Not Recovered/Not Resolved]
  - Pain [Not Recovered/Not Resolved]
  - Nasal ulcer [Not Recovered/Not Resolved]
  - Dyspnoea [Recovered/Resolved]
  - Diarrhoea [Not Recovered/Not Resolved]
  - Onychalgia [Not Recovered/Not Resolved]
  - Blood lactate dehydrogenase increased [Not Recovered/Not Resolved]
  - Renal function test abnormal [Not Recovered/Not Resolved]
  - Hyperventilation [Not Recovered/Not Resolved]
  - Ill-defined disorder [Not Recovered/Not Resolved]
  - Balance disorder [Not Recovered/Not Resolved]
  - Muscle tightness [Not Recovered/Not Resolved]
  - Feeling hot [Not Recovered/Not Resolved]
  - Musculoskeletal pain [Not Recovered/Not Resolved]
  - Fatigue [Not Recovered/Not Resolved]
  - Anaemia [Not Recovered/Not Resolved]
  - Paraesthesia [Not Recovered/Not Resolved]
  - Hypoaesthesia [Not Recovered/Not Resolved]
  - Tension [Not Recovered/Not Resolved]
  - Somnolence [Not Recovered/Not Resolved]
  - Pain in extremity [Not Recovered/Not Resolved]
  - Anxiety [Not Recovered/Not Resolved]
  - Cough [Not Recovered/Not Resolved]
  - Rash [Not Recovered/Not Resolved]
  - Weight increased [Not Recovered/Not Resolved]
  - Middle insomnia [Not Recovered/Not Resolved]
  - Liver function test abnormal [Not Recovered/Not Resolved]
  - Epistaxis [Not Recovered/Not Resolved]
  - Neuropathy peripheral [Not Recovered/Not Resolved]
  - Abasia [Not Recovered/Not Resolved]
  - Dry skin [Not Recovered/Not Resolved]
  - Dyspepsia [Not Recovered/Not Resolved]
  - Nausea [Not Recovered/Not Resolved]
  - Chest pain [Not Recovered/Not Resolved]
  - Palmar erythema [Not Recovered/Not Resolved]
  - Hallucination [Recovered/Resolved]
  - Device failure [Not Recovered/Not Resolved]
  - Body temperature decreased [Not Recovered/Not Resolved]
  - Gait disturbance [Not Recovered/Not Resolved]
  - Memory impairment [Recovered/Resolved]
  - Back pain [Not Recovered/Not Resolved]
  - Ejection fraction decreased [Recovered/Resolved]
  - Heart rate irregular [Not Recovered/Not Resolved]
  - Thyroid function test abnormal [Not Recovered/Not Resolved]
  - Erythema [Not Recovered/Not Resolved]
  - Muscular weakness [Not Recovered/Not Resolved]
  - Disturbance in attention [Not Recovered/Not Resolved]
  - Nasal congestion [Not Recovered/Not Resolved]
  - Lymphoedema [Not Recovered/Not Resolved]
  - Vomiting [Not Recovered/Not Resolved]
  - Arthralgia [Not Recovered/Not Resolved]
  - Flatulence [Not Recovered/Not Resolved]
  - Panic attack [Not Recovered/Not Resolved]
  - Visual impairment [Recovered/Resolved]
  - Sleep disorder [Not Recovered/Not Resolved]
  - Myalgia [Not Recovered/Not Resolved]

NARRATIVE: CASE EVENT DATE: 20100321
